FAERS Safety Report 11536471 (Version 1)
Quarter: 2015Q3

REPORT INFORMATION
  Report Type: Spontaneous
  Country: US (occurrence: US)
  Receive Date: 20150922
  Receipt Date: 20150922
  Transmission Date: 20151125
  Serious: No
  Sender: FDA-Public Use
  Company Number: ALCN2014US003297

PATIENT
  Age: 57 Year
  Sex: Female
  Weight: 64.85 kg

DRUGS (3)
  1. TOBRADEX [Suspect]
     Active Substance: DEXAMETHASONE\TOBRAMYCIN
     Indication: HORDEOLUM
     Dosage: 1 GTT, QD
     Route: 047
     Dates: start: 20140527, end: 20140529
  2. METOPROLOL SUCC CT [Concomitant]
     Indication: TACHYCARDIA
     Dosage: 12.5 MG, QD
     Route: 048
  3. SYSTANE ULTRA [Suspect]
     Active Substance: POLYETHYLENE GLYCOL 400\PROPYLENE GLYCOL
     Indication: DRY EYE
     Dosage: 1 GTT, PRN
     Route: 047
     Dates: start: 20140529, end: 20140529

REACTIONS (4)
  - Medication residue present [Recovered/Resolved]
  - Corneal irritation [Recovered/Resolved]
  - Eye irritation [Recovered/Resolved]
  - Corneal abrasion [Recovered/Resolved]

NARRATIVE: CASE EVENT DATE: 20140529
